FAERS Safety Report 9815841 (Version 1)
Quarter: 2014Q1

REPORT INFORMATION
  Report Type: Spontaneous
  Country: US (occurrence: US)
  Receive Date: 20140114
  Receipt Date: 20140114
  Transmission Date: 20141002
  Serious: Yes (Other)
  Sender: FDA-Public Use
  Company Number: US-ASTRAZENECA-2014SE01515

PATIENT
  Age: 281 Month
  Sex: Female
  Weight: 47.6 kg

DRUGS (6)
  1. NEXIUM [Suspect]
     Indication: ULCER
     Route: 048
     Dates: start: 201208, end: 201308
  2. RITALIN [Concomitant]
     Route: 048
     Dates: start: 2000
  3. SINGULAIR [Concomitant]
     Indication: MULTIPLE ALLERGIES
     Route: 048
     Dates: start: 2005
  4. ZYRTEC [Concomitant]
     Indication: MULTIPLE ALLERGIES
     Route: 048
  5. CARAFATE [Concomitant]
     Indication: ABDOMINAL DISCOMFORT
     Route: 048
     Dates: start: 201208
  6. PROTONIX [Concomitant]
     Indication: ULCER
     Route: 048

REACTIONS (5)
  - Hypokinesia [Unknown]
  - Weight decreased [Recovered/Resolved]
  - Nutritional condition abnormal [Unknown]
  - Gastroenteritis eosinophilic [Unknown]
  - Off label use [Unknown]
